FAERS Safety Report 4886796-3 (Version None)
Quarter: 2006Q1

REPORT INFORMATION
  Report Type: 
  Country: None (occurrence: None)
  Receive Date: 20060119
  Receipt Date: 20060119
  Transmission Date: 20060701
  Serious: Yes (Hospitalization)
  Sender: FDA-Public Use
  Company Number: None

PATIENT
  Age: 46 Year
  Sex: Male
  Weight: 106.1 kg

DRUGS (13)
  1. ETODOLAC [Suspect]
  2. HYDROCHLOROTHIAZIDE [Concomitant]
  3. OMEPRAZOLE [Concomitant]
  4. ALBUTEROL / IPRATROP [Concomitant]
  5. DOCUSATE NA [Concomitant]
  6. CITALOPRAM HYDROBROMIDE [Concomitant]
  7. MORPHINE SULFATE [Concomitant]
  8. NICOTINE [Concomitant]
  9. PRAMIPEXOLE DIHYDROCHLORIDE [Concomitant]
  10. TRAZODONE HCL [Concomitant]
  11. MAGNESIUM HYDROXIDE TAB [Concomitant]
  12. LORAZEPAM [Concomitant]
  13. RANITIDINE [Concomitant]

REACTIONS (1)
  - PANCREATITIS [None]
